FAERS Safety Report 4679539-X (Version None)
Quarter: 2005Q2

REPORT INFORMATION
  Report Type: 
  Country: None (occurrence: None)
  Receive Date: 20050602
  Receipt Date: 20050523
  Transmission Date: 20051028
  Serious: Yes (Other)
  Sender: FDA-Public Use
  Company Number: PHEH2005US05836

PATIENT
  Age: 86 Year
  Sex: Female

DRUGS (5)
  1. MIACALCIN [Suspect]
     Indication: OSTEOPOROSIS
     Dates: start: 20040201
  2. THYROLAR [Concomitant]
     Indication: HYPERTHYROIDISM
  3. AVAPRO [Concomitant]
     Indication: HYPERTENSION
  4. TOPROL-XL [Concomitant]
     Indication: HYPERTENSION
  5. CALTRATE +D [Concomitant]

REACTIONS (10)
  - ASTHENIA [None]
  - DEAFNESS [None]
  - DEPRESSION [None]
  - ENTROPION [None]
  - EYE PAIN [None]
  - FATIGUE [None]
  - INSOMNIA [None]
  - NAUSEA [None]
  - SURGERY [None]
  - VISION BLURRED [None]
